FAERS Safety Report 17824498 (Version 1)
Quarter: 2020Q2

REPORT INFORMATION
  Report Type: Spontaneous
  Country: US (occurrence: US)
  Receive Date: 20200526
  Receipt Date: 20200526
  Transmission Date: 20200714
  Serious: Yes (Hospitalization, Other)
  Sender: FDA-Public Use
  Company Number: US-PURACAP PHARMACEUTICAL LLC-2020EPC00169

PATIENT
  Sex: Male

DRUGS (2)
  1. DIPHENHYDRAMINE NIGHTTIME SLEEP AID [Suspect]
     Active Substance: DIPHENHYDRAMINE
     Dosage: UNK
     Route: 048
  2. DIPHENHYDRAMINE NIGHTTIME SLEEP AID [Suspect]
     Active Substance: DIPHENHYDRAMINE
     Dosage: 2-12 BOXES A DAY, 1X/DAY
     Route: 048

REACTIONS (4)
  - Overdose [Unknown]
  - Irritability [Unknown]
  - Drug dependence [Unknown]
  - Unevaluable event [Unknown]
